FAERS Safety Report 11476101 (Version 1)
Quarter: 2015Q3

REPORT INFORMATION
  Report Type: Other
  Country: IN (occurrence: IN)
  Receive Date: 20150909
  Receipt Date: 20150909
  Transmission Date: 20151125
  Serious: Yes (Other)
  Sender: FDA-Public Use
  Company Number: IN-LUPIN PHARMACEUTICALS INC.-2015-02711

PATIENT
  Age: 72 Year
  Sex: Male
  Weight: 68 kg

DRUGS (9)
  1. METOPROLOL XL [Suspect]
     Active Substance: METOPROLOL
     Indication: HYPERTENSION
     Route: 065
  2. AMLODIPINE [Suspect]
     Active Substance: AMLODIPINE BESYLATE
     Indication: HYPERTENSION
     Route: 065
  3. PROPOFOL. [Suspect]
     Active Substance: PROPOFOL
     Indication: INDUCTION OF ANAESTHESIA
     Route: 042
  4. GLYCOPYRROLATE. [Concomitant]
     Active Substance: GLYCOPYRROLATE
     Indication: PRODUCT USED FOR UNKNOWN INDICATION
     Route: 065
  5. MORPHINE [Suspect]
     Active Substance: MORPHINE
     Indication: INDUCTION OF ANAESTHESIA
     Route: 065
  6. FENTANYL. [Concomitant]
     Active Substance: FENTANYL
     Indication: PRODUCT USED FOR UNKNOWN INDICATION
     Route: 065
  7. VENCURONIUM [Suspect]
     Active Substance: VECURONIUM BROMIDE
     Indication: INDUCTION OF ANAESTHESIA
     Route: 042
  8. ONDANSETRON [Concomitant]
     Active Substance: ONDANSETRON
     Indication: PRODUCT USED FOR UNKNOWN INDICATION
     Route: 065
  9. ISOFLURANE. [Suspect]
     Active Substance: ISOFLURANE
     Indication: INDUCTION OF ANAESTHESIA
     Route: 065

REACTIONS (7)
  - Urine output decreased [Recovering/Resolving]
  - Drug interaction [Unknown]
  - Hypotension [Recovering/Resolving]
  - Lactic acidosis [Recovering/Resolving]
  - Oxygen saturation decreased [Recovering/Resolving]
  - Hypothermia [Recovered/Resolved]
  - Toxicity to various agents [Recovering/Resolving]
